FAERS Safety Report 6068116-4 (Version None)
Quarter: 2009Q1

REPORT INFORMATION
  Report Type: 
  Country: None (occurrence: None)
  Receive Date: 20090206
  Receipt Date: 20090129
  Transmission Date: 20090719
  Serious: Yes (Death, Life-Threatening, Hospitalization)
  Sender: FDA-Public Use
  Company Number: DE-AMGEN-US325530

PATIENT
  Sex: Female
  Weight: 30 kg

DRUGS (2)
  1. ENBREL [Suspect]
     Indication: JUVENILE ARTHRITIS
     Route: 058
     Dates: start: 20001010, end: 20060901
  2. DECORTIN [Concomitant]
     Indication: JUVENILE ARTHRITIS
     Route: 048

REACTIONS (4)
  - ACUTE HEPATIC FAILURE [None]
  - CARDIAC ARREST [None]
  - GASTROINTESTINAL HAEMORRHAGE [None]
  - SEPTIC SHOCK [None]
